FAERS Safety Report 5379647-4 (Version None)
Quarter: 2007Q3

REPORT INFORMATION
  Report Type: 
  Country: None (occurrence: None)
  Receive Date: 20070706
  Receipt Date: 20070626
  Transmission Date: 20080115
  Serious: Yes (Other)
  Sender: FDA-Public Use
  Company Number: PHBS2006JP09581

PATIENT
  Age: 64 Year
  Sex: Female
  Weight: 48 kg

DRUGS (5)
  1. AREDIA [Suspect]
     Indication: MULTIPLE MYELOMA
     Dosage: 45 MG, UNK
     Route: 042
     Dates: start: 20041201, end: 20060301
  2. DECADRON [Suspect]
     Indication: MULTIPLE MYELOMA
     Dosage: 2 MG/D
     Route: 048
     Dates: start: 20040901
  3. DIOVAN [Concomitant]
     Dosage: 160 MG/D
     Route: 048
  4. OMEPRAL [Concomitant]
     Dosage: 20 MG/D
     Route: 048
  5. AMLODIN [Concomitant]
     Dosage: 5 MG/D
     Route: 048

REACTIONS (9)
  - BONE DISORDER [None]
  - BONE TRIMMING [None]
  - OSTEOMYELITIS [None]
  - OSTEONECROSIS [None]
  - PAIN IN JAW [None]
  - SEQUESTRECTOMY [None]
  - TOOTH DISORDER [None]
  - TOOTH EXTRACTION [None]
  - VIITH NERVE PARALYSIS [None]
